FAERS Safety Report 9353427 (Version 2)
Quarter: 2013Q3

REPORT INFORMATION
  Report Type: Spontaneous
  Country: US (occurrence: US)
  Receive Date: 20130618
  Receipt Date: 20130709
  Transmission Date: 20140515
  Serious: Yes (Hospitalization, Other)
  Sender: FDA-Public Use
  Company Number: US-SHIRE-ALL1-2013-04075

PATIENT
  Sex: Male
  Weight: 156.46 kg

DRUGS (7)
  1. VYVANSE [Suspect]
     Indication: ATTENTION DEFICIT/HYPERACTIVITY DISORDER
     Dosage: 70 MG, 1X/DAY:QD (40 MG CAPSULE AM AND 30 MG CAPSULE 2 HOURS LATER)
     Dates: start: 2012
  2. VYVANSE [Suspect]
     Dosage: 30 MG, 1X/DAY:QD(40 MG CAPSULE AM AND 30 MG CAPSULE 2 HOURS LATER)
     Dates: start: 2012
  3. LITHIUM [Concomitant]
     Indication: BIPOLAR DISORDER
     Dosage: UNK, UNKNOWN
     Route: 065
     Dates: end: 201302
  4. KLONOPIN [Concomitant]
     Indication: ANXIETY
     Dosage: 4 MG, 2X/DAY:BID (TWO- 2MG TABLETS TWICE DAILY)
     Route: 048
  5. DEPAKOTE [Concomitant]
     Indication: DEPRESSION
     Dosage: 500 MG, 3X/DAY:TID
     Route: 048
  6. DEPAKOTE [Concomitant]
     Indication: BIPOLAR DISORDER
  7. METHADONE                          /00068902/ [Concomitant]
     Indication: DRUG WITHDRAWAL MAINTENANCE THERAPY
     Dosage: 90 MG, 1X/DAY:QD
     Route: 048

REACTIONS (5)
  - Anger [Recovered/Resolved]
  - Condition aggravated [Recovered/Resolved]
  - Abnormal loss of weight [Recovering/Resolving]
  - Drug prescribing error [Not Recovered/Not Resolved]
  - Drug effect decreased [Not Recovered/Not Resolved]
